FAERS Safety Report 5744691-1 (Version None)
Quarter: 2008Q2

REPORT INFORMATION
  Report Type: 
  Country: None (occurrence: None)
  Receive Date: 20080520
  Receipt Date: 20080508
  Transmission Date: 20081010
  Serious: Yes (Other)
  Sender: FDA-Public Use
  Company Number: US-PFIZER INC-2008040304

PATIENT
  Sex: Male
  Weight: 109.09 kg

DRUGS (2)
  1. VIAGRA [Suspect]
     Indication: ERECTILE DYSFUNCTION
  2. ANTIHYPERTENSIVES [Suspect]

REACTIONS (3)
  - DYSPNOEA [None]
  - PALPITATIONS [None]
  - PERSONALITY CHANGE [None]
